FAERS Safety Report 5873720-X (Version None)
Quarter: 2008Q3

REPORT INFORMATION
  Report Type: 
  Country: None (occurrence: None)
  Receive Date: 20080904
  Receipt Date: 20080904
  Transmission Date: 20090109
  Serious: Yes (Hospitalization)
  Sender: FDA-Public Use
  Company Number: None

PATIENT
  Age: 78 Year
  Sex: Male

DRUGS (1)
  1. WARFARIN SODIUM [Suspect]
     Indication: AORTIC VALVE REPAIR
     Dosage: 3.5 MG EVERY DAY PO
     Route: 048
     Dates: start: 20080718, end: 20080724

REACTIONS (5)
  - ARTERIOVENOUS MALFORMATION [None]
  - DIVERTICULUM [None]
  - GASTRIC HAEMORRHAGE [None]
  - HAEMORRHOIDS [None]
  - INTERNATIONAL NORMALISED RATIO INCREASED [None]
